FAERS Safety Report 13799827 (Version 1)
Quarter: 2017Q3

REPORT INFORMATION
  Report Type: Spontaneous
  Country: US (occurrence: US)
  Receive Date: 20170727
  Receipt Date: 20170727
  Transmission Date: 20171127
  Serious: No
  Sender: FDA-Public Use
  Company Number: US-JNJFOC-20170516092

PATIENT
  Age: 44 Year
  Sex: Male
  Weight: 108.86 kg

DRUGS (10)
  1. METFORMIN [Concomitant]
     Active Substance: METFORMIN HYDROCHLORIDE
     Indication: DIABETES MELLITUS
     Dosage: DAILY, 11 YEARS
     Route: 065
  2. QUETIAPINE FUMARATE. [Concomitant]
     Active Substance: QUETIAPINE FUMARATE
     Indication: SLEEP DISORDER
     Dosage: DAILY,11 YEARS
     Route: 065
  3. LISINOPRIL. [Concomitant]
     Active Substance: LISINOPRIL
     Indication: HYPERTENSION
     Dosage: DAILY, 11 YEARS
     Route: 065
  4. BENZTROPINE MESYLATE. [Concomitant]
     Active Substance: BENZTROPINE MESYLATE
     Indication: MUSCULOSKELETAL STIFFNESS
     Dosage: 11 YEARS, DAILY
     Route: 065
  5. MENS ROGAINE EXTRA STRENGTH [Suspect]
     Active Substance: MINOXIDIL
     Indication: ALOPECIA
     Dosage: LIBERAL AMOUNT ALL OVER HEAD
     Route: 061
  6. ASPRIN [Concomitant]
     Active Substance: ASPIRIN
     Indication: RENAL DISORDER
     Dosage: DAILY, 11 YEARS
     Route: 065
  7. LIPITOR [Concomitant]
     Active Substance: ATORVASTATIN CALCIUM
     Indication: BLOOD CHOLESTEROL INCREASED
     Dosage: DAILY, 11 YEARS
     Route: 065
  8. MENS ROGAINE EXTRA STRENGTH [Suspect]
     Active Substance: MINOXIDIL
     Indication: ALOPECIA
     Dosage: LIBERAL AMOUNT ALL OVER HEAD
     Route: 061
  9. VITAMIN D3 [Concomitant]
     Active Substance: CHOLECALCIFEROL
     Indication: VITAMIN D DEFICIENCY
     Dosage: DAILY, 11 YEARS
     Route: 065
  10. HALOPERIDOL. [Concomitant]
     Active Substance: HALOPERIDOL
     Indication: MUSCULOSKELETAL STIFFNESS
     Dosage: DAILY, 11 YEARS
     Route: 048

REACTIONS (4)
  - Drug administered at inappropriate site [Recovered/Resolved]
  - Medication residue present [Recovered/Resolved]
  - Product use in unapproved indication [Recovered/Resolved]
  - Inappropriate schedule of drug administration [Recovered/Resolved]
